FAERS Safety Report 5232045-6 (Version None)
Quarter: 2007Q1

REPORT INFORMATION
  Report Type: 
  Country: None (occurrence: None)
  Receive Date: 20070202
  Receipt Date: 20070129
  Transmission Date: 20070707
  Serious: Yes (Hospitalization)
  Sender: FDA-Public Use
  Company Number: 163-20785-06080998

PATIENT
  Age: 78 Year
  Sex: Male

DRUGS (11)
  1. THALOMID [Suspect]
     Indication: WALDENSTROM'S MACROGLOBULINAEMIA
     Dosage: 200  MG, Q HS, ORAL
     Route: 048
     Dates: start: 20060310, end: 20060801
  2. DECADRON [Concomitant]
  3. ARANESP [Concomitant]
  4. COLACE (DOCUSATE SODIUM) [Concomitant]
  5. B6 [Concomitant]
  6. CARDURA [Concomitant]
  7. LEXAPRO [Concomitant]
  8. FOLIC ACID [Concomitant]
  9. LASIX [Concomitant]
  10. ALDACTONE [Concomitant]
  11. BIAXIN [Concomitant]

REACTIONS (3)
  - BLOOD ALBUMIN DECREASED [None]
  - FLUID RETENTION [None]
  - NAUSEA [None]
